FAERS Safety Report 4795674-X (Version None)
Quarter: 2005Q4

REPORT INFORMATION
  Report Type: 
  Country: None (occurrence: None)
  Receive Date: 20051007
  Receipt Date: 20051007
  Transmission Date: 20060501
  Serious: Yes (Disabling)
  Sender: FDA-Public Use
  Company Number: None

PATIENT
  Age: 36 Year
  Sex: Female
  Weight: 94.3482 kg

DRUGS (2)
  1. ZICAM NASAL GEL COLD REMEDY ZICAM LLC [Suspect]
     Indication: NASAL CONGESTION
     Dosage: 1 SQUIRT EACH NOSTRIL TWICE NASAL
     Route: 045
     Dates: start: 20050930, end: 20051001
  2. DIANE 35 ORAL CONTRACEPTIVE [Concomitant]

REACTIONS (2)
  - ANOSMIA [None]
  - DIZZINESS [None]
